FAERS Safety Report 5620259-2 (Version None)
Quarter: 2008Q1

REPORT INFORMATION
  Report Type: 
  Country: None (occurrence: None)
  Receive Date: 20080208
  Receipt Date: 20080204
  Transmission Date: 20080703
  Serious: Yes (Other)
  Sender: FDA-Public Use
  Company Number: B0506329A

PATIENT
  Sex: Female

DRUGS (6)
  1. VENETLIN [Suspect]
     Indication: DRUG USE FOR UNKNOWN INDICATION
     Route: 048
  2. CALONAL [Concomitant]
     Route: 048
  3. BIOFERMIN [Concomitant]
     Route: 048
  4. MUCODYNE [Concomitant]
     Route: 048
  5. HUSCODE [Concomitant]
     Route: 048
  6. UNSPECIFIED DRUG [Concomitant]
     Route: 048

REACTIONS (1)
  - HALLUCINATION [None]
